FAERS Safety Report 7957023-5 (Version None)
Quarter: 2011Q4

REPORT INFORMATION
  Report Type: 
  Country: None (occurrence: None)
  Receive Date: 20111205
  Receipt Date: 20111205
  Transmission Date: 20120403
  Serious: Yes (Other)
  Sender: FDA-Public Use
  Company Number: None

PATIENT
  Age: 59 Year
  Sex: Female
  Weight: 52.163 kg

DRUGS (1)
  1. NASONEX [Suspect]
     Indication: NASAL SEPTUM DEVIATION
     Dosage: SPRAY 1 SPRAY IN EACH NOSTRIL
     Route: 045
     Dates: start: 20110601, end: 20111202

REACTIONS (2)
  - OESOPHAGEAL INFECTION [None]
  - FUNGAL INFECTION [None]
